FAERS Safety Report 8485555-2 (Version None)
Quarter: 2012Q3

REPORT INFORMATION
  Report Type: 
  Country: None (occurrence: None)
  Receive Date: 20120703
  Receipt Date: 20120628
  Transmission Date: 20120928
  Serious: Yes (Life-Threatening, Other)
  Sender: FDA-Public Use
  Company Number: CN-ASTRAZENECA-2012SE43641

PATIENT
  Age: 21 Year
  Sex: Female

DRUGS (1)
  1. PROPOFOL [Suspect]
     Route: 042

REACTIONS (1)
  - ANAPHYLACTIC SHOCK [None]
